FAERS Safety Report 20025776 (Version 1)
Quarter: 2021Q4

REPORT INFORMATION
  Report Type: Report from Study
  Country: BR (occurrence: BR)
  Receive Date: 20211102
  Receipt Date: 20211102
  Transmission Date: 20220303
  Serious: Yes (Other)
  Sender: FDA-Public Use
  Company Number: BR-NAPPMUNDI-GBR-2021-0092041

PATIENT
  Age: 28 Year
  Sex: Female
  Weight: 134 kg

DRUGS (15)
  1. MORPHINE SULFATE [Suspect]
     Active Substance: MORPHINE SULFATE
     Indication: Neuromuscular blockade reversal
     Dosage: 0.1 MG/KG, UNK
     Route: 065
  2. LIDOCAINE [Suspect]
     Active Substance: LIDOCAINE
     Indication: Local anaesthesia
     Dosage: UNK
     Route: 065
  3. PROPOFOL [Suspect]
     Active Substance: PROPOFOL
     Indication: General anaesthesia
     Dosage: 100 MG, UNK
     Route: 065
  4. FENTANYL [Suspect]
     Active Substance: FENTANYL
     Indication: General anaesthesia
     Dosage: 150 MCG, UNK
     Route: 065
  5. ROCURONIUM [Suspect]
     Active Substance: ROCURONIUM BROMIDE
     Indication: General anaesthesia
     Dosage: 30 MG, UNK
     Route: 065
  6. SEVOFLURANE [Suspect]
     Active Substance: SEVOFLURANE
     Indication: General anaesthesia
     Dosage: UNK
     Route: 065
  7. DIPYRONE [Suspect]
     Active Substance: DIPYRONE
     Indication: Neuromuscular blockade reversal
     Dosage: 30 MG/KG, UNK
     Route: 065
  8. KETOPROFEN [Suspect]
     Active Substance: KETOPROFEN
     Indication: Neuromuscular blockade reversal
     Dosage: 0.1 MG/KG, UNK
     Route: 065
  9. ONDANSETRON [Suspect]
     Active Substance: ONDANSETRON
     Indication: Neuromuscular blockade reversal
     Dosage: 0.15 MG/KG, UNK
     Route: 065
  10. DEXAMETHASONE [Suspect]
     Active Substance: DEXAMETHASONE
     Indication: Neuromuscular blockade reversal
     Dosage: 0.1 MG/KG, UNK
     Route: 065
  11. SUGAMMADEX [Suspect]
     Active Substance: SUGAMMADEX
     Indication: Neuromuscular blockade reversal
     Dosage: UNK
     Route: 065
  12. SPIRONOLACTONE [Concomitant]
     Active Substance: SPIRONOLACTONE
     Dosage: 25 MG, UNK
  13. DIVELOL [Concomitant]
     Dosage: 25 MG, UNK
  14. LOSARTAN [Concomitant]
     Active Substance: LOSARTAN
     Dosage: 50 MG, UNK
  15. ASPIRIN [Concomitant]
     Active Substance: ASPIRIN
     Indication: Anticoagulant therapy

REACTIONS (4)
  - Pulmonary congestion [Recovered/Resolved]
  - Rales [Recovered/Resolved]
  - Oxygen saturation decreased [Recovered/Resolved]
  - Dyspnoea [Recovered/Resolved]
